FAERS Safety Report 7939317-2 (Version None)
Quarter: 2011Q4

REPORT INFORMATION
  Report Type: 
  Country: None (occurrence: None)
  Receive Date: 20111125
  Receipt Date: 20111026
  Transmission Date: 20120403
  Serious: Yes (Hospitalization)
  Sender: FDA-Public Use
  Company Number: US-BAYER-2011-073941

PATIENT
  Age: 53 Year
  Sex: Female

DRUGS (14)
  1. RISPERDAL [Concomitant]
     Dosage: 1 MG/ML
  2. CLONAZEPAM [Concomitant]
     Dosage: 0.5 MG
  3. DEPAKOTE [Concomitant]
     Dosage: 500 MG
  4. DIVALPROEX SODIUM [Concomitant]
     Dosage: 500 MG, UNK
  5. PANTOPRAZOLE [Concomitant]
     Dosage: 40 MG
  6. TRAVATAN [Concomitant]
     Dosage: 0.0004 % SOL.
  7. ASPIRIN [Concomitant]
     Dosage: 81 MG
  8. PROTONIX [Concomitant]
     Dosage: 40 MG
  9. COGENTIN [Concomitant]
     Dosage: 1 MG/ML
  10. NEXAVAR [Suspect]
     Indication: NEOPLASM MALIGNANT
     Dosage: 400 MG, BID
     Route: 048
     Dates: start: 20110225
  11. NEXAVAR [Suspect]
     Dosage: 200 MG, BID
     Route: 048
     Dates: start: 20110501
  12. IRON [Concomitant]
     Dosage: 28 MG
  13. LEVOTHYROXINE SODIUM [Concomitant]
     Dosage: 50 MCG
  14. LEVOTHYROXINE SODIUM [Concomitant]
     Dosage: 50 MG

REACTIONS (3)
  - BLISTER [None]
  - PALMAR-PLANTAR ERYTHRODYSAESTHESIA SYNDROME [None]
  - PAIN IN EXTREMITY [None]
